FAERS Safety Report 17866224 (Version 2)
Quarter: 2020Q2

REPORT INFORMATION
  Report Type: Spontaneous
  Country: MX (occurrence: MX)
  Receive Date: 20200605
  Receipt Date: 20200618
  Transmission Date: 20200714
  Serious: Yes (Other)
  Sender: FDA-Public Use
  Company Number: MX-PFIZER INC-2020216455

PATIENT
  Age: 40 Year
  Sex: Male

DRUGS (22)
  1. HYOSCINE [Concomitant]
     Active Substance: SCOPOLAMINE
     Indication: WEIGHT DECREASED
  2. TACROLIMUS. [Concomitant]
     Active Substance: TACROLIMUS
     Indication: PYREXIA
     Dosage: UNK
     Dates: start: 2019
  3. METHYLPREDNISOLONE ACETATE. [Suspect]
     Active Substance: METHYLPREDNISOLONE ACETATE
     Indication: RENAL TRANSPLANT
  4. LOPERAMIDE [Concomitant]
     Active Substance: LOPERAMIDE
     Indication: WEIGHT DECREASED
  5. LOPERAMIDE [Concomitant]
     Active Substance: LOPERAMIDE
     Indication: ABDOMINAL DISCOMFORT
  6. BASILIXIMAB RECOMBINANT [Suspect]
     Active Substance: BASILIXIMAB
     Indication: RENAL TRANSPLANT
  7. ACETAMINOPHEN. [Concomitant]
     Active Substance: ACETAMINOPHEN
     Indication: PYREXIA
     Dosage: UNK
     Dates: start: 2019
  8. TACROLIMUS. [Concomitant]
     Active Substance: TACROLIMUS
     Indication: ABDOMINAL DISCOMFORT
  9. METHYLPREDNISOLONE ACETATE. [Suspect]
     Active Substance: METHYLPREDNISOLONE ACETATE
     Indication: IMMUNOSUPPRESSANT DRUG THERAPY
     Dosage: UNK
     Dates: start: 2019
  10. BASILIXIMAB RECOMBINANT [Suspect]
     Active Substance: BASILIXIMAB
     Indication: IMMUNOSUPPRESSANT DRUG THERAPY
     Dosage: UNK
     Dates: start: 2015
  11. LOPERAMIDE [Concomitant]
     Active Substance: LOPERAMIDE
     Indication: PYREXIA
     Dosage: UNK
     Dates: start: 2019
  12. HYOSCINE [Concomitant]
     Active Substance: SCOPOLAMINE
     Indication: PYREXIA
     Dosage: UNK
     Dates: start: 2019
  13. MYCOPHENOLIC ACID. [Concomitant]
     Active Substance: MYCOPHENOLIC ACID
     Indication: WEIGHT DECREASED
  14. ACETAMINOPHEN. [Concomitant]
     Active Substance: ACETAMINOPHEN
     Indication: WEIGHT DECREASED
  15. ACETAMINOPHEN. [Concomitant]
     Active Substance: ACETAMINOPHEN
     Indication: ABDOMINAL DISCOMFORT
  16. HYOSCINE [Concomitant]
     Active Substance: SCOPOLAMINE
     Indication: ABDOMINAL DISCOMFORT
  17. PREDNISONE. [Concomitant]
     Active Substance: PREDNISONE
     Indication: WEIGHT DECREASED
  18. MYCOPHENOLIC ACID. [Concomitant]
     Active Substance: MYCOPHENOLIC ACID
     Indication: PYREXIA
     Dosage: UNK
     Dates: start: 2019
  19. PREDNISONE. [Concomitant]
     Active Substance: PREDNISONE
     Indication: PYREXIA
     Dosage: UNK
     Dates: start: 2019
  20. TACROLIMUS. [Concomitant]
     Active Substance: TACROLIMUS
     Indication: WEIGHT DECREASED
  21. MYCOPHENOLIC ACID. [Concomitant]
     Active Substance: MYCOPHENOLIC ACID
     Indication: ABDOMINAL DISCOMFORT
  22. PREDNISONE. [Concomitant]
     Active Substance: PREDNISONE
     Indication: ABDOMINAL DISCOMFORT

REACTIONS (1)
  - Tuberculosis [Unknown]
